FAERS Safety Report 13690905 (Version 1)
Quarter: 2017Q2

REPORT INFORMATION
  Report Type: Spontaneous
  Country: US (occurrence: US)
  Receive Date: 20170626
  Receipt Date: 20170626
  Transmission Date: 20170830
  Serious: No
  Sender: FDA-Public Use
  Company Number: US-CLOVIS ONCOLOGY-CLO-2017-000300

PATIENT
  Age: 78 Year
  Sex: Female
  Weight: 70.3 kg

DRUGS (3)
  1. RUBRACA [Suspect]
     Active Substance: RUCAPARIB CAMSYLATE
     Indication: OVARIAN CANCER
     Dosage: 600 MG, BID
     Dates: start: 20170401
  2. RUBRACA [Suspect]
     Active Substance: RUCAPARIB CAMSYLATE
     Dosage: 400 MG, BID
     Route: 048
  3. SYNTHROID [Concomitant]
     Active Substance: LEVOTHYROXINE SODIUM
     Indication: THYROID DISORDER
     Dosage: 475 UNK, UNK

REACTIONS (12)
  - Hypersomnia [Recovered/Resolved]
  - Dyspepsia [Unknown]
  - Dizziness [Unknown]
  - Pain in extremity [Unknown]
  - Prescribed underdose [Unknown]
  - Restless legs syndrome [Unknown]
  - Constipation [Unknown]
  - Drug dose omission [Unknown]
  - Insomnia [Unknown]
  - Alopecia [Unknown]
  - Haemoglobin decreased [Not Recovered/Not Resolved]
  - Fatigue [Unknown]

NARRATIVE: CASE EVENT DATE: 20170401
